FAERS Safety Report 7283120-6 (Version None)
Quarter: 2011Q1

REPORT INFORMATION
  Report Type: 
  Country: None (occurrence: None)
  Receive Date: 20110209
  Receipt Date: 20100923
  Transmission Date: 20110831
  Serious: No
  Sender: FDA-Public Use
  Company Number: A0877731A

PATIENT
  Sex: Male

DRUGS (2)
  1. PAROXETINE HCL [Suspect]
     Dosage: 37.5MG PER DAY
     Route: 048
     Dates: start: 20080501
  2. PAROXETINE HCL [Suspect]
     Dosage: 25MG PER DAY
     Route: 048
     Dates: start: 20080501

REACTIONS (2)
  - MEDICATION RESIDUE [None]
  - PRODUCT QUALITY ISSUE [None]
